FAERS Safety Report 8285946-9 (Version None)
Quarter: 2012Q2

REPORT INFORMATION
  Report Type: 
  Country: None (occurrence: None)
  Receive Date: 20120415
  Receipt Date: 20120402
  Transmission Date: 20120825
  Serious: Yes (Other)
  Sender: FDA-Public Use
  Company Number: US-ELI_LILLY_AND_COMPANY-US201202002261

PATIENT
  Sex: Female

DRUGS (5)
  1. ACTONEL [Concomitant]
  2. LISINOPRIL [Concomitant]
  3. VITAMIN E [Concomitant]
  4. VITAMIN A [Concomitant]
  5. EVISTA [Suspect]
     Indication: OSTEOPOROSIS
     Dosage: 60 MG, QD
     Dates: end: 20111101

REACTIONS (3)
  - FRACTURED COCCYX [None]
  - DRUG INEFFECTIVE [None]
  - PELVIC FRACTURE [None]
